FAERS Safety Report 6553621-4 (Version None)
Quarter: 2010Q1

REPORT INFORMATION
  Report Type: 
  Country: None (occurrence: None)
  Receive Date: 20100127
  Receipt Date: 20100111
  Transmission Date: 20100710
  Serious: Yes (Other)
  Sender: FDA-Public Use
  Company Number: US-PFIZER INC-2008081326

PATIENT
  Sex: Female
  Weight: 68.027 kg

DRUGS (5)
  1. DILANTIN [Suspect]
     Indication: CONVULSION
     Dosage: 100 MG, 3X/DAY
     Route: 048
     Dates: start: 19780101
  2. SPIRIVA [Suspect]
     Indication: CHRONIC OBSTRUCTIVE PULMONARY DISEASE
     Dosage: UNK
     Route: 045
     Dates: start: 20091201
  3. PROVENTIL GENTLEHALER [Concomitant]
     Indication: CHRONIC OBSTRUCTIVE PULMONARY DISEASE
     Dosage: UNK
  4. NEURONTIN [Concomitant]
     Indication: ILL-DEFINED DISORDER
     Dosage: 1800 MG, UNK
     Route: 048
     Dates: start: 20000101
  5. PREVACID [Concomitant]
     Indication: GASTROOESOPHAGEAL REFLUX DISEASE
     Dosage: 70 MG, DAILY
     Route: 048
     Dates: start: 19970101

REACTIONS (2)
  - CONVULSION [None]
  - DRUG INEFFECTIVE [None]
